FAERS Safety Report 14521644 (Version 2)
Quarter: 2018Q2

REPORT INFORMATION
  Report Type: Spontaneous
  Country: ES (occurrence: ES)
  Receive Date: 20180212
  Receipt Date: 20180509
  Transmission Date: 20180711
  Serious: Yes (Other)
  Sender: FDA-Public Use
  Company Number: ES-ELI_LILLY_AND_COMPANY-ES201802003658

PATIENT
  Sex: Female

DRUGS (4)
  1. ADCIRCA [Suspect]
     Active Substance: TADALAFIL
     Indication: PULMONARY ARTERIAL HYPERTENSION
     Dosage: 40 MG, DAILY
     Route: 048
     Dates: start: 20150728
  2. ADCIRCA [Suspect]
     Active Substance: TADALAFIL
     Indication: VENTRICULAR SEPTAL DEFECT
  3. ADCIRCA [Suspect]
     Active Substance: TADALAFIL
     Indication: RIGHT-TO-LEFT CARDIAC SHUNT
     Dosage: 20 MG, DAILY
     Route: 048
     Dates: start: 20140912
  4. ADCIRCA [Suspect]
     Active Substance: TADALAFIL
     Indication: TRISOMY 21

REACTIONS (2)
  - Off label use [Unknown]
  - Deafness [Recovered/Resolved with Sequelae]

NARRATIVE: CASE EVENT DATE: 2016
